FAERS Safety Report 4782755-X (Version None)
Quarter: 2005Q3

REPORT INFORMATION
  Report Type: 
  Country: None (occurrence: None)
  Receive Date: 20050927
  Receipt Date: 20050913
  Transmission Date: 20060218
  Serious: Yes (Other)
  Sender: FDA-Public Use
  Company Number: B0394710A

PATIENT
  Age: 78 Year
  Sex: Female

DRUGS (1)
  1. LANOXIN [Suspect]

REACTIONS (7)
  - BRADYCARDIA [None]
  - ELECTROCARDIOGRAM QRS COMPLEX PROLONGED [None]
  - HAEMODIALYSIS [None]
  - HYPERKALAEMIA [None]
  - RENAL FAILURE CHRONIC [None]
  - TACHYCARDIA [None]
  - THERAPEUTIC AGENT TOXICITY [None]
